FAERS Safety Report 6792954-3 (Version None)
Quarter: 2010Q2

REPORT INFORMATION
  Report Type: 
  Country: None (occurrence: None)
  Receive Date: 20100624
  Receipt Date: 20081103
  Transmission Date: 20101027
  Serious: No
  Sender: FDA-Public Use
  Company Number: US-PFIZER INC-2008093519

PATIENT
  Age: 57 Year
  Sex: Male
  Weight: 68.04 kg

DRUGS (3)
  1. XALATAN [Suspect]
     Dates: start: 20071201
  2. METHADONE [Concomitant]
     Indication: PAIN
  3. NEXIUM [Concomitant]
     Indication: GASTRIC DISORDER

REACTIONS (3)
  - EYE PAIN [None]
  - EYE PRURITUS [None]
  - OCULAR HYPERAEMIA [None]
